FAERS Safety Report 20949482 (Version 10)
Quarter: 2023Q1

REPORT INFORMATION
  Report Type: Report from Study
  Country: TH (occurrence: None)
  Receive Date: 20220613
  Receipt Date: 20230222
  Transmission Date: 20230418
  Serious: Yes (Life-Threatening, Hospitalization)
  Sender: FDA-Public Use
  Company Number: TH-ROCHE-3112075

PATIENT
  Age: 63 Year
  Sex: Male
  Weight: 79.4 kg

DRUGS (25)
  1. ATEZOLIZUMAB [Suspect]
     Active Substance: ATEZOLIZUMAB
     Indication: Hepatocellular carcinoma
     Dosage: START DATE OF MOST RECENT DOSE OF STUDY DRUG PRIOR TO AE/SAE: 17/MAY/2022, DOSE OF STUDY DRUG FIRST
     Route: 041
     Dates: start: 20220517
  2. BEVACIZUMAB [Suspect]
     Active Substance: BEVACIZUMAB
     Indication: Hepatocellular carcinoma
     Dosage: START DATE OF MOST RECENT DOSE OF STUDY DRUG PRIOR TO AE/SAE: 17/MAY/2022,DOSE OF STUDY DRUG FIRST A
     Route: 042
     Dates: start: 20220517
  3. CARBOXYMETHYLCELLULOSE SODIUM [Concomitant]
     Active Substance: CARBOXYMETHYLCELLULOSE SODIUM
     Indication: Cataract
     Dates: start: 2016
  4. METFORMIN [Concomitant]
     Active Substance: METFORMIN HYDROCHLORIDE
     Indication: Diabetes mellitus
     Dates: start: 2012
  5. ATENOLOL [Concomitant]
     Active Substance: ATENOLOL
     Indication: Hypertension
     Dates: start: 2002
  6. ATENOLOL [Concomitant]
     Active Substance: ATENOLOL
     Dates: start: 2002
  7. ENALAPRIL [Concomitant]
     Active Substance: ENALAPRIL
     Indication: Hypertension
     Dates: start: 2002
  8. ENALAPRIL [Concomitant]
     Active Substance: ENALAPRIL
     Dates: start: 2002
  9. AMLODIPINE [Concomitant]
     Active Substance: AMLODIPINE BESYLATE
     Indication: Hypertension
     Dates: start: 2002
  10. AMLODIPINE [Concomitant]
     Active Substance: AMLODIPINE BESYLATE
     Dates: start: 2002
  11. ASPIRIN [Concomitant]
     Active Substance: ASPIRIN
     Indication: Hypertension
     Dates: start: 2003
  12. ASPIRIN [Concomitant]
     Active Substance: ASPIRIN
     Dates: start: 2002
  13. HYDROCHLOROTHIAZIDE [Concomitant]
     Active Substance: HYDROCHLOROTHIAZIDE
     Indication: Hypertension
     Dates: start: 2003, end: 20220606
  14. HYDROCHLOROTHIAZIDE [Concomitant]
     Active Substance: HYDROCHLOROTHIAZIDE
     Dates: start: 2002
  15. ALLOPURINOL [Concomitant]
     Active Substance: ALLOPURINOL
     Indication: Arthralgia
     Dates: start: 2016
  16. LOSEC [Concomitant]
     Active Substance: OMEPRAZOLE
     Indication: Dyspepsia
     Dates: start: 20220604, end: 20220607
  17. MIRACID (THAILAND) [Concomitant]
     Indication: Dyspepsia
     Dates: start: 20220607
  18. EPINEPHRINE [Concomitant]
     Active Substance: EPINEPHRINE
     Indication: Anaphylactic reaction
     Dates: start: 20220627, end: 20220629
  19. SODIUM CHLORIDE [Concomitant]
     Active Substance: SODIUM CHLORIDE
     Indication: Anaphylactic reaction
     Dates: start: 20220627, end: 20220628
  20. CHLORPHENIRAMINE [Concomitant]
     Active Substance: CHLORPHENIRAMINE
     Indication: Anaphylactic reaction
     Dates: start: 20220627, end: 20220628
  21. CHLORPHENIRAMINE [Concomitant]
     Active Substance: CHLORPHENIRAMINE
     Dates: start: 20220628, end: 20220629
  22. DEXAMETHASONE [Concomitant]
     Active Substance: DEXAMETHASONE
     Indication: Anaphylactic reaction
     Dates: start: 20220627, end: 20220628
  23. DEXAMETHASONE [Concomitant]
     Active Substance: DEXAMETHASONE
     Dates: start: 20220628, end: 20220629
  24. CETIRIZINE [Concomitant]
     Active Substance: CETIRIZINE HYDROCHLORIDE
     Indication: Anaphylactic reaction
     Dates: start: 20220629
  25. ACETAR (THAILAND) [Concomitant]
     Indication: Anaphylactic reaction
     Dates: start: 20220628, end: 20220629

REACTIONS (1)
  - Cardiac failure [Recovered/Resolved]

NARRATIVE: CASE EVENT DATE: 20220604
